FAERS Safety Report 23683759 (Version 1)
Quarter: 2024Q1

REPORT INFORMATION
  Report Type: Spontaneous
  Country: US (occurrence: None)
  Receive Date: 20240328
  Receipt Date: 20240328
  Transmission Date: 20240409
  Serious: Yes (Disabling, Other)
  Sender: FDA-Public Use
  Company Number: None

PATIENT
  Age: 63 Year
  Sex: Female
  Weight: 58.5 kg

DRUGS (10)
  1. BELBUCA [Suspect]
     Active Substance: BUPRENORPHINE HYDROCHLORIDE
     Indication: Fibromyalgia
  2. ZYRTEC [Concomitant]
     Active Substance: CETIRIZINE HYDROCHLORIDE
  3. ADDERALL [Concomitant]
     Active Substance: AMPHETAMINE ASPARTATE\AMPHETAMINE SULFATE\DEXTROAMPHETAMINE SACCHARATE\DEXTROAMPHETAMINE SULFATE
  4. CELEXA [Concomitant]
     Active Substance: CITALOPRAM HYDROBROMIDE
  5. lorsartin [Concomitant]
  6. MAXALT [Concomitant]
     Active Substance: RIZATRIPTAN BENZOATE
  7. TYLENOL [Concomitant]
     Active Substance: ACETAMINOPHEN
  8. excedrine [Concomitant]
  9. ADVIL [Concomitant]
     Active Substance: IBUPROFEN
  10. aleive [Concomitant]

REACTIONS (4)
  - Inadequate analgesia [None]
  - Tooth injury [None]
  - Surgical failure [None]
  - Dental caries [None]

NARRATIVE: CASE EVENT DATE: 20220111
